FAERS Safety Report 7230820-X (Version None)
Quarter: 2011Q1

REPORT INFORMATION
  Report Type: 
  Country: None (occurrence: None)
  Receive Date: 20110118
  Receipt Date: 20101223
  Transmission Date: 20110831
  Serious: Yes (Disabling)
  Sender: FDA-Public Use
  Company Number: PHHY2010US76659

PATIENT
  Sex: Female

DRUGS (8)
  1. ASPIRIN [Concomitant]
  2. MULTIVITAMIN [Concomitant]
  3. LOVAZA [Concomitant]
  4. FEMARA [Suspect]
     Indication: BREAST CANCER
     Dosage: 2.5 MG, QD
     Route: 048
     Dates: start: 20100203
  5. FEMARA [Suspect]
     Dosage: 2.5 MG DAILY
     Route: 048
     Dates: start: 20100614, end: 20101021
  6. PREDNISONE [Concomitant]
  7. CALCIUM [Concomitant]
  8. VITAMIN D [Concomitant]

REACTIONS (7)
  - ARTHRALGIA [None]
  - JOINT SWELLING [None]
  - ASTHENIA [None]
  - POLYMYALGIA RHEUMATICA [None]
  - PAIN [None]
  - OEDEMA PERIPHERAL [None]
  - ARTHRITIS [None]
